FAERS Safety Report 8771575 (Version 10)
Quarter: 2014Q2

REPORT INFORMATION
  Report Type: Spontaneous
  Country: US (occurrence: US)
  Receive Date: 20120905
  Receipt Date: 20140409
  Transmission Date: 20141212
  Serious: Yes (Hospitalization, Disabling, Other)
  Sender: FDA-Public Use
  Company Number: US-009507513-1205USA00303

PATIENT
  Sex: Female
  Weight: 113.6 kg

DRUGS (6)
  1. FOSAMAX [Suspect]
     Indication: OSTEOPOROSIS
     Dosage: 10 MG QD
     Route: 048
  2. FOSAMAX [Suspect]
     Dosage: 70 MG, QW
     Route: 048
     Dates: start: 2001, end: 201110
  3. FOSAMAX [Suspect]
     Dosage: 35 MG, QW
     Route: 048
     Dates: start: 2001, end: 201110
  4. FOSAMAX [Suspect]
     Indication: OSTEOPOROSIS
     Dosage: 35 MG, QW
     Route: 048
     Dates: start: 20101222, end: 201108
  5. ALENDRONATE SODIUM [Suspect]
     Indication: OSTEOPOROSIS
     Dosage: 70 MG, QW
     Route: 048
     Dates: start: 20080212
  6. SPIRONOLACTONE [Concomitant]
     Indication: HYPERTENSION

REACTIONS (67)
  - Femur fracture [Not Recovered/Not Resolved]
  - Cerebrovascular accident [Unknown]
  - Tibia fracture [Unknown]
  - Hip arthroplasty [Unknown]
  - Purulence [Unknown]
  - Packed red blood cell transfusion [Unknown]
  - Dysthymic disorder [Unknown]
  - Haematoma evacuation [Unknown]
  - Low turnover osteopathy [Not Recovered/Not Resolved]
  - Iron deficiency anaemia [Unknown]
  - Malnutrition [Unknown]
  - Surgery [Unknown]
  - Hysterectomy [Unknown]
  - Impaired healing [Unknown]
  - Salpingo-oophorectomy [Unknown]
  - Hip arthroplasty [Unknown]
  - Surgery [Unknown]
  - Staphylococcus test [Unknown]
  - Hip arthroplasty [Unknown]
  - Femur fracture [Unknown]
  - Hip fracture [Not Recovered/Not Resolved]
  - Hip arthroplasty [Unknown]
  - Abscess limb [Unknown]
  - Surgery [Unknown]
  - Surgery [Unknown]
  - Non-cardiac chest pain [Unknown]
  - Chronic obstructive pulmonary disease [Unknown]
  - Chronic obstructive pulmonary disease [Unknown]
  - Wheelchair user [Unknown]
  - Poisoning [Unknown]
  - Coronary artery disease [Unknown]
  - Cardiac failure congestive [Unknown]
  - Osteoarthritis [Unknown]
  - Hypothyroidism [Unknown]
  - Transient ischaemic attack [Unknown]
  - Renal mass [Unknown]
  - Anaemia [Unknown]
  - Depression [Unknown]
  - Emphysema [Unknown]
  - Pain [Unknown]
  - Joint dislocation [Unknown]
  - Infection [Unknown]
  - Ligament sprain [Unknown]
  - Aspiration [Unknown]
  - Angina pectoris [Unknown]
  - Chondrocalcinosis [Unknown]
  - Chondrocalcinosis pyrophosphate [Unknown]
  - Osteopenia [Unknown]
  - Arthritis bacterial [Unknown]
  - Osteomyelitis [Unknown]
  - Breast calcifications [Unknown]
  - Spinal osteoarthritis [Unknown]
  - Spinal compression fracture [Unknown]
  - Intervertebral disc degeneration [Unknown]
  - Fall [Unknown]
  - Alcohol abuse [Unknown]
  - Chronic obstructive pulmonary disease [Unknown]
  - Fall [Unknown]
  - Migraine [Unknown]
  - Hypertonic bladder [Unknown]
  - Oral surgery [Unknown]
  - Pain in extremity [Unknown]
  - Gastritis [Unknown]
  - Back pain [Unknown]
  - Diarrhoea [Unknown]
  - Nausea [Unknown]
  - Gastrooesophageal reflux disease [Unknown]
